FAERS Safety Report 16807327 (Version 5)
Quarter: 2020Q4

REPORT INFORMATION
  Report Type: Report from Study
  Country: JP (occurrence: JP)
  Receive Date: 20190913
  Receipt Date: 20201230
  Transmission Date: 20210113
  Serious: Yes (Hospitalization, Other)
  Sender: FDA-Public Use
  Company Number: JP-BRISTOL-MYERS SQUIBB COMPANY-BMS-2019-084562

PATIENT
  Age: 48 Year
  Sex: Female
  Weight: 45.4 kg

DRUGS (6)
  1. NIVOLUMAB [Suspect]
     Active Substance: NIVOLUMAB
     Indication: OVARIAN CANCER
     Dosage: 480 MILLIGRAM, Q4WK
     Route: 042
     Dates: start: 20190808, end: 20190808
  2. BIFIDOBACTERIUM BIFIDUM [Concomitant]
     Active Substance: BIFIDOBACTERIUM BIFIDUM
     Indication: CONSTIPATION
     Dosage: 12 MILLIGRAM
     Route: 048
     Dates: start: 2019
  3. ALCLOMETASONE DIPROPIONATE. [Concomitant]
     Active Substance: ALCLOMETASONE DIPROPIONATE
     Indication: RASH
     Dosage: UNK
     Route: 062
     Dates: start: 2019
  4. HEPARINOID [Concomitant]
     Active Substance: CHONDROITIN SULFATE (BOVINE)
     Indication: PROPHYLAXIS
     Dosage: UNK
     Route: 062
     Dates: start: 2019
  5. RUCAPARIB [Suspect]
     Active Substance: RUCAPARIB
     Indication: OVARIAN CANCER
     Dosage: 600 MILLIGRAM, BID
     Route: 048
     Dates: start: 20190711, end: 20190821
  6. BETAMETHASONE BUTYRATE PROPIONATE [Concomitant]
     Active Substance: BETAMETHASONE BUTYRATE PROPIONATE
     Indication: PROPHYLAXIS
     Dosage: UNK
     Route: 062
     Dates: start: 2019

REACTIONS (2)
  - Haemolytic anaemia [Recovering/Resolving]
  - Febrile neutropenia [Recovered/Resolved]

NARRATIVE: CASE EVENT DATE: 20190905
